FAERS Safety Report 8000365-8 (Version None)
Quarter: 2011Q4

REPORT INFORMATION
  Report Type: 
  Country: None (occurrence: None)
  Receive Date: 20111222
  Receipt Date: 20111213
  Transmission Date: 20120403
  Serious: Yes (Hospitalization)
  Sender: FDA-Public Use
  Company Number: US-BAYER-2011-073701

PATIENT
  Age: 26 Year
  Sex: Female

DRUGS (9)
  1. YAZ [Suspect]
     Indication: CONTRACEPTION
     Dosage: UNK
     Dates: start: 20080701, end: 20081201
  2. URSO FORTE [Concomitant]
     Dosage: ONE AT NIGHT
  3. YAZ [Suspect]
     Dosage: UNK
     Dates: start: 20100301, end: 20100401
  4. YASMIN [Suspect]
     Dosage: UNK
     Dates: start: 20080301, end: 20080401
  5. YAZ [Suspect]
     Dosage: UNK
     Dates: start: 20091101, end: 20091201
  6. YAZ [Suspect]
     Dosage: UNK
     Dates: start: 20090701, end: 20090901
  7. YASMIN [Suspect]
     Indication: CONTRACEPTION
     Dosage: UNK
     Dates: start: 20051201, end: 20080201
  8. YASMIN [Suspect]
     Dosage: UNK
     Dates: start: 20090501, end: 20091001
  9. ZITHROMAX [Concomitant]

REACTIONS (4)
  - GALLBLADDER DISORDER [None]
  - INJURY [None]
  - BILIARY DYSKINESIA [None]
  - PAIN [None]
